FAERS Safety Report 12927110 (Version 1)
Quarter: 2016Q4

REPORT INFORMATION
  Report Type: Spontaneous
  Country: US (occurrence: US)
  Receive Date: 20161109
  Receipt Date: 20161109
  Transmission Date: 20170207
  Serious: Yes (Hospitalization)
  Sender: FDA-Public Use
  Company Number: None

PATIENT
  Age: 12 Year
  Sex: Female
  Weight: 50.3 kg

DRUGS (6)
  1. METHOTREXATE. [Suspect]
     Active Substance: METHOTREXATE
     Dates: end: 20160708
  2. VINCRISTINE SULFATE. [Suspect]
     Active Substance: VINCRISTINE SULFATE
     Dates: end: 20160708
  3. CYTARABINE. [Suspect]
     Active Substance: CYTARABINE
     Dates: end: 20160704
  4. CYCLOPHOSPHAMIDE. [Suspect]
     Active Substance: CYCLOPHOSPHAMIDE
     Dates: end: 20160624
  5. MERCAPTOPURINE. [Suspect]
     Active Substance: MERCAPTOPURINE
     Dates: end: 20160707
  6. ONCASPAR [Suspect]
     Active Substance: PEGASPARGASE
     Dates: end: 20160708

REACTIONS (4)
  - Toxicity to various agents [None]
  - Seizure [None]
  - Infection [None]
  - Febrile neutropenia [None]

NARRATIVE: CASE EVENT DATE: 20160711
